FAERS Safety Report 21070155 (Version 1)
Quarter: 2022Q3

REPORT INFORMATION
  Report Type: Spontaneous
  Country: DE (occurrence: DE)
  Receive Date: 20220712
  Receipt Date: 20220712
  Transmission Date: 20221027
  Serious: Yes (Other)
  Sender: FDA-Public Use
  Company Number: DE-VER-202200011

PATIENT
  Sex: Male

DRUGS (2)
  1. TRIPTORELIN PAMOATE [Suspect]
     Active Substance: TRIPTORELIN PAMOATE
     Indication: Prostate cancer
     Route: 065
  2. XTANDI [Suspect]
     Active Substance: ENZALUTAMIDE
     Indication: Product used for unknown indication
     Dosage: START DATE: NOV-2021
     Route: 030

REACTIONS (11)
  - Metastases to pelvis [Unknown]
  - Wrong technique in product usage process [Unknown]
  - Back pain [Unknown]
  - Gait disturbance [Unknown]
  - Off label use [Unknown]
  - Injection site bruising [Recovered/Resolved]
  - Confusional state [Unknown]
  - Nausea [Unknown]
  - Drug intolerance [Unknown]
  - Drug ineffective [Unknown]
  - Fluid retention [Recovering/Resolving]

NARRATIVE: CASE EVENT DATE: 20180101
